FAERS Safety Report 4973398-3 (Version None)
Quarter: 2006Q1

REPORT INFORMATION
  Report Type: 
  Country: None (occurrence: None)
  Receive Date: 20060315
  Receipt Date: 20060315
  Transmission Date: 20060701
  Serious: Yes (Hospitalization)
  Sender: FDA-Public Use
  Company Number: None

PATIENT
  Sex: Male
  Weight: 67.586 kg

DRUGS (11)
  1. VIAGRA [Suspect]
  2. REYATAZ [Concomitant]
  3. NORVIR [Concomitant]
  4. SAQUINAVIR [Concomitant]
  5. ZIAGEN [Concomitant]
  6. LIPITOR [Concomitant]
  7. ACYCLOVIR [Concomitant]
  8. TIMOLOL MALEATE [Concomitant]
  9. NASINEX [Concomitant]
  10. IMODIUM [Concomitant]
  11. METAMUCIL [Concomitant]

REACTIONS (3)
  - BRADYCARDIA [None]
  - HYPOAESTHESIA [None]
  - MYOCARDIAL INFARCTION [None]
